FAERS Safety Report 24439638 (Version 2)
Quarter: 2024Q4

REPORT INFORMATION
  Report Type: Spontaneous
  Country: US (occurrence: US)
  Receive Date: 20241015
  Receipt Date: 20241115
  Transmission Date: 20250115
  Serious: Yes (Hospitalization)
  Sender: TEVA
  Company Number: US-TEVA-VS-3253748

PATIENT
  Age: 42 Year
  Sex: Male

DRUGS (1)
  1. SOTALOL [Suspect]
     Active Substance: SOTALOL\SOTALOL HYDROCHLORIDE
     Indication: Ventricular tachycardia
     Route: 065

REACTIONS (1)
  - Cardiac disorder [Unknown]
